FAERS Safety Report 4526895-9 (Version None)
Quarter: 2004Q4

REPORT INFORMATION
  Report Type: 
  Country: None (occurrence: None)
  Receive Date: 20041105
  Receipt Date: 20040920
  Transmission Date: 20050328
  Serious: No
  Sender: FDA-Public Use
  Company Number: 2004USFACT00044

PATIENT
  Age: 56 Year
  Sex: Female

DRUGS (10)
  1. FACTIVE [Suspect]
     Indication: RESPIRATORY TRACT INFECTION BACTERIAL
     Dosage: 320.00 MG, QD, ORAL
     Route: 048
     Dates: start: 20040902, end: 20040908
  2. SYNTHROID [Concomitant]
  3. NEXIUM [Concomitant]
  4. ACETYLSALICYLIC ACID SRT [Concomitant]
  5. METOPROLOL [Concomitant]
  6. ZOCOR [Concomitant]
  7. FEMPART [Concomitant]
  8. CALCIUM [Concomitant]
  9. VITAMIN E [Concomitant]
  10. MULTIVITAMINS (ASCORBIC ACID, THIAMINE HYDROCHLORIDE, RIBOFLAVIN, RETI [Concomitant]

REACTIONS (1)
  - RASH GENERALISED [None]
